FAERS Safety Report 23754611 (Version 1)
Quarter: 2024Q2

REPORT INFORMATION
  Report Type: Spontaneous
  Country: FR (occurrence: FR)
  Receive Date: 20240418
  Receipt Date: 20240418
  Transmission Date: 20240715
  Serious: Yes (Hospitalization, Other)
  Sender: FDA-Public Use
  Company Number: FR-AFSSAPS-TS2024000365

PATIENT
  Age: 82 Year
  Sex: Male
  Weight: 68 kg

DRUGS (2)
  1. ATORVASTATIN [Suspect]
     Active Substance: ATORVASTATIN
     Indication: Cerebrovascular accident prophylaxis
     Dosage: 80 MILLIGRAM
     Route: 048
     Dates: start: 202309, end: 20240318
  2. KEYTRUDA [Suspect]
     Active Substance: PEMBROLIZUMAB
     Indication: Adenocarcinoma of colon
     Dosage: 200 MILLIGRAM (C1+C2) EVERY 3 WEEKS
     Route: 042
     Dates: start: 20240125, end: 20240215

REACTIONS (3)
  - Cholestatic liver injury [Recovering/Resolving]
  - Myositis [Recovering/Resolving]
  - Diabetes mellitus [Recovering/Resolving]

NARRATIVE: CASE EVENT DATE: 20240307
